FAERS Safety Report 9490900 (Version 1)
Quarter: 2013Q3

REPORT INFORMATION
  Report Type: Spontaneous
  Country: US (occurrence: None)
  Receive Date: 20130828
  Receipt Date: 20130828
  Transmission Date: 20140515
  Serious: Yes (Life-Threatening, Other)
  Sender: FDA-Public Use
  Company Number: None

PATIENT
  Age: 71 Year
  Sex: Female
  Weight: 66.68 kg

DRUGS (11)
  1. LEVOFLOXACIN [Suspect]
     Indication: KNEE ARTHROPLASTY
     Dosage: 4  TAKE I HR PRIOR TO HAVING TEETH CLEANED  4 TABLETS BY MOUTH
     Route: 048
     Dates: start: 2001
  2. MELOXICAM [Concomitant]
  3. ATORVASTATIN [Concomitant]
  4. FLUOXITINE [Concomitant]
  5. OXYCODONE/ACETAMINOPHEN [Concomitant]
  6. FISH OIL [Concomitant]
  7. GARLIC [Concomitant]
  8. RESVERATROL [Concomitant]
  9. SELENIUM [Concomitant]
  10. COQ-10 [Concomitant]
  11. COMPLETE VITAMIN [Concomitant]

REACTIONS (4)
  - Tremor [None]
  - Nausea [None]
  - Fall [None]
  - Unevaluable event [None]
